FAERS Safety Report 9382473 (Version 2)
Quarter: 2013Q3

REPORT INFORMATION
  Report Type: Spontaneous
  Country: US (occurrence: US)
  Receive Date: 20130703
  Receipt Date: 20130729
  Transmission Date: 20140515
  Serious: Yes (Death, Hospitalization)
  Sender: FDA-Public Use
  Company Number: US-ACTELION-A-US2013-85140

PATIENT
  Age: 55 Year
  Sex: Female

DRUGS (14)
  1. VELETRI [Suspect]
     Indication: PORTOPULMONARY HYPERTENSION
     Dosage: 18 NG/KG, PER MIN
     Route: 042
     Dates: start: 20120104, end: 20130623
  2. MULTIVITAMIN [Concomitant]
  3. LEVOTHYROXIN [Concomitant]
  4. XIFAXAN [Concomitant]
  5. LASIX [Concomitant]
  6. CALCIUM CARBONATE [Concomitant]
  7. ASA [Concomitant]
  8. ESTROGEN [Concomitant]
  9. FENTANYL [Concomitant]
  10. NEURONTIN [Concomitant]
  11. LACTULOSE [Concomitant]
  12. SALAGEN [Concomitant]
  13. PRILOSEC [Concomitant]
  14. POTASSIUM [Concomitant]

REACTIONS (1)
  - Myocardial infarction [Fatal]
